FAERS Safety Report 4437593-4 (Version None)
Quarter: 2004Q3

REPORT INFORMATION
  Report Type: 
  Country: None (occurrence: None)
  Receive Date: 20040830
  Receipt Date: 20040830
  Transmission Date: 20050211
  Serious: Yes (Life-Threatening)
  Sender: FDA-Public Use
  Company Number: None

PATIENT
  Sex: Female
  Weight: 81.8 kg

DRUGS (3)
  1. CEFUROXIME [Suspect]
     Indication: BIOPSY LUNG
     Dosage: 1.5 GM ONCE IV
     Route: 042
     Dates: start: 20031118, end: 20031118
  2. CEFUROXIME [Suspect]
     Indication: PROPHYLAXIS
     Dosage: 1.5 GM ONCE IV
     Route: 042
     Dates: start: 20031118, end: 20031118
  3. . [Concomitant]

REACTIONS (5)
  - ANAPHYLACTIC REACTION [None]
  - BRONCHOSPASM [None]
  - HYPOTENSION [None]
  - PULMONARY ARTERIAL PRESSURE INCREASED [None]
  - RASH [None]
